FAERS Safety Report 6147678-2 (Version None)
Quarter: 2009Q2

REPORT INFORMATION
  Report Type: 
  Country: None (occurrence: None)
  Receive Date: 20090408
  Receipt Date: 20090331
  Transmission Date: 20091009
  Serious: Yes (Hospitalization)
  Sender: FDA-Public Use
  Company Number: PHHO2007DE19926

PATIENT
  Sex: Male

DRUGS (19)
  1. CYCLOSPORINE [Suspect]
     Indication: RENAL TRANSPLANT
     Dosage: VARYING DOSE RANGES
     Route: 048
     Dates: start: 20040114, end: 20050216
  2. CYCLOSPORINE [Suspect]
     Dosage: 75 MG / DAY
     Route: 048
     Dates: start: 20050221
  3. CYCLOSPORINE [Suspect]
     Dosage: 75 MG, BID
     Route: 048
     Dates: start: 20050222
  4. CYCLOSPORINE [Suspect]
     Dosage: 100 MG TO 137.5 MG BID
     Route: 048
     Dates: start: 20050223, end: 20050308
  5. MYCOPHENOLATE MOFETIL [Suspect]
     Indication: RENAL TRANSPLANT
     Dosage: 1 G, BID
     Route: 048
     Dates: start: 20040114, end: 20050215
  6. MYCOPHENOLATE MOFETIL [Suspect]
     Dosage: 250 MG, BID
     Route: 048
     Dates: start: 20050226, end: 20050303
  7. MYCOPHENOLATE MOFETIL [Suspect]
     Dosage: 250 MG, BID
     Route: 048
     Dates: start: 20050407
  8. MYCOPHENOLATE MOFETIL [Suspect]
     Dosage: 500 MG, BID
     Route: 048
     Dates: start: 20050714
  9. PREDNISOLONE [Suspect]
     Indication: RENAL TRANSPLANT
     Dosage: 20 MG, QD
     Route: 048
     Dates: start: 20040116, end: 20050217
  10. PREDNISOLONE [Suspect]
     Dosage: 10 MG / DAY
     Route: 048
     Dates: start: 20050224
  11. PREDNISOLONE SODIUM SUCCINATE INJ [Concomitant]
     Indication: RENAL TRANSPLANT
     Dosage: 250 MG, BID
  12. PREDNISOLONE SODIUM SUCCINATE INJ [Concomitant]
     Dosage: 250 MG / DAY
     Route: 048
     Dates: start: 20050303, end: 20050304
  13. CYMEVEN [Concomitant]
  14. SORTIS [Concomitant]
  15. EBRANTIL [Concomitant]
  16. COTRIM [Concomitant]
  17. VALGANCICLOVIR HCL [Concomitant]
  18. ERYTHROMYCIN [Concomitant]
  19. AMPHOTERICIN B [Concomitant]

REACTIONS (12)
  - ASPIRATION PLEURAL CAVITY [None]
  - COMPLICATIONS OF TRANSPLANTED KIDNEY [None]
  - CONCOMITANT DISEASE PROGRESSION [None]
  - DEHYDRATION [None]
  - GLOMERULONEPHRITIS RAPIDLY PROGRESSIVE [None]
  - NEPHROPATHY TOXIC [None]
  - PLEURAL EFFUSION [None]
  - PNEUMONIA [None]
  - PYREXIA [None]
  - RENAL VASCULITIS [None]
  - SEPSIS [None]
  - THERAPEUTIC AGENT TOXICITY [None]
